FAERS Safety Report 7811085-4 (Version None)
Quarter: 2011Q4

REPORT INFORMATION
  Report Type: 
  Country: None (occurrence: None)
  Receive Date: 20111013
  Receipt Date: 20111004
  Transmission Date: 20120403
  Serious: Yes (Other)
  Sender: FDA-Public Use
  Company Number: US-US-EMD SERONO, INC.-232005J10USA

PATIENT
  Sex: Female
  Weight: 81 kg

DRUGS (5)
  1. KLONOPIN [Concomitant]
  2. OXYCODONE HCL [Concomitant]
     Indication: PAIN
  3. REBIF [Suspect]
     Indication: MULTIPLE SCLEROSIS
     Route: 058
     Dates: start: 20100218
  4. REBIF [Suspect]
     Route: 058
     Dates: end: 20100801
  5. GABAPENTIN [Concomitant]
     Indication: FIBROMYALGIA

REACTIONS (7)
  - OPTIC NEURITIS [None]
  - INJECTION SITE ERYTHEMA [None]
  - MUSCLE SPASMS [None]
  - DEPRESSION [None]
  - URINARY INCONTINENCE [None]
  - INJECTION SITE PRURITUS [None]
  - INFLUENZA LIKE ILLNESS [None]
